FAERS Safety Report 9683914 (Version 2)
Quarter: 2013Q4

REPORT INFORMATION
  Report Type: Spontaneous
  Country: US (occurrence: US)
  Receive Date: 20131112
  Receipt Date: 20131112
  Transmission Date: 20140711
  Serious: Yes (Other)
  Sender: FDA-Public Use
  Company Number: US-MALLINCKRODT-T201304652

PATIENT
  Age: 90 Year
  Sex: Male
  Weight: 97.51 kg

DRUGS (8)
  1. FENTANYL TRANSDERMAL SYSTEM [Suspect]
     Indication: BACK PAIN
     Dosage: 25 UG/HR, 1 PATCH Q72H
     Route: 062
     Dates: start: 20130928, end: 20131018
  2. BENADRYL                           /00000402/ [Concomitant]
     Indication: SLEEP DISORDER
     Dosage: 50 MG, QHS PRN
     Route: 048
  3. CARVEDILOL [Concomitant]
     Dosage: 6.25 MG, BID
     Route: 048
  4. AMIODARONE [Concomitant]
     Dosage: 200 MG, QD
     Route: 048
  5. LASIX                              /00032601/ [Concomitant]
     Dosage: 40 MG, QD
     Route: 048
  6. POTASSIUM CHLORIDE [Concomitant]
     Indication: SUPPLEMENTATION THERAPY
     Dosage: 10 MEQ, QD
     Route: 048
  7. VITAMIN D                          /00107901/ [Concomitant]
     Indication: SUPPLEMENTATION THERAPY
     Dosage: 2000 U, QD
     Route: 048
  8. LEVOTHYROXINE [Concomitant]
     Indication: HYPOTHYROIDISM
     Dosage: .175 MG, QD
     Route: 048

REACTIONS (2)
  - Hallucination [Recovered/Resolved]
  - Application site irritation [Recovered/Resolved]
